FAERS Safety Report 10006191 (Version 3)
Quarter: 2014Q2

REPORT INFORMATION
  Report Type: Spontaneous
  Country: JP (occurrence: JP)
  Receive Date: 20140313
  Receipt Date: 20140418
  Transmission Date: 20141212
  Serious: Yes (Hospitalization)
  Sender: FDA-Public Use
  Company Number: JP-ASTELLAS-2014US002491

PATIENT
  Age: 63 Year
  Sex: Male

DRUGS (4)
  1. TARCEVA [Suspect]
     Indication: LUNG ADENOCARCINOMA
     Route: 048
     Dates: start: 20140207, end: 20140211
  2. TARCEVA [Suspect]
     Route: 048
     Dates: start: 20140122, end: 20140205
  3. HIRUDOID                           /00723701/ [Concomitant]
     Indication: PROPHYLAXIS
     Dosage: 1 PROPER QUANTITY, UID/QD
     Route: 003
  4. HANGESHASHINTO [Concomitant]
     Indication: PRODUCT USED FOR UNKNOWN INDICATION
     Route: 065

REACTIONS (4)
  - Interstitial lung disease [Recovered/Resolved]
  - Pyrexia [Recovered/Resolved]
  - Diarrhoea [Recovered/Resolved]
  - Rash [Recovering/Resolving]
